FAERS Safety Report 24307840 (Version 1)
Quarter: 2024Q3

REPORT INFORMATION
  Report Type: Spontaneous
  Country: NL (occurrence: None)
  Receive Date: 20240911
  Receipt Date: 20240911
  Transmission Date: 20241017
  Serious: Yes (Other)
  Sender: ASTRAZENECA
  Company Number: 2024A205965

PATIENT
  Age: 42 Year
  Sex: Female
  Weight: 110 kg

DRUGS (3)
  1. QUETIAPINE [Suspect]
     Active Substance: QUETIAPINE
     Indication: Sleep disorder
     Dosage: IF NECESSARY, 1 TO 2 PER DAY1.0DF INTERMITTENT
     Dates: start: 20190401
  2. QUETIAPINE [Suspect]
     Active Substance: QUETIAPINE
     Indication: Depression
     Dosage: IF NECESSARY, 1 TO 2 PER DAY1.0DF INTERMITTENT
     Dates: start: 20190401
  3. QUETIAPINE [Suspect]
     Active Substance: QUETIAPINE
     Indication: Anxiety
     Dosage: IF NECESSARY, 1 TO 2 PER DAY1.0DF INTERMITTENT
     Dates: start: 20190401

REACTIONS (5)
  - Aphasia [Unknown]
  - Disturbance in attention [Unknown]
  - Nightmare [Unknown]
  - Initial insomnia [Unknown]
  - Asthenia [Unknown]
